FAERS Safety Report 15415244 (Version 5)
Quarter: 2018Q4

REPORT INFORMATION
  Report Type: Spontaneous
  Country: US (occurrence: US)
  Receive Date: 20180921
  Receipt Date: 20181008
  Transmission Date: 20190204
  Serious: Yes (Hospitalization)
  Sender: FDA-Public Use
  Company Number: US-ACTELION-A-US2017-156831

PATIENT
  Age: 63 Year
  Sex: Female

DRUGS (8)
  1. ATORVASTATIN [Concomitant]
     Active Substance: ATORVASTATIN
     Dosage: 10 MG, UNK
  2. LEVOTHYROXINE. [Concomitant]
     Active Substance: LEVOTHYROXINE
     Dosage: 75 MCG, QD
  3. PREDNISONE. [Concomitant]
     Active Substance: PREDNISONE
     Dosage: 1 MG, QID
  4. TORSEMIDE. [Concomitant]
     Active Substance: TORSEMIDE
     Dosage: 5 MG, QD
  5. VELETRI [Suspect]
     Active Substance: EPOPROSTENOL
     Indication: PULMONARY ARTERIAL HYPERTENSION
     Dosage: 30 NG/KG, PER MIN
     Route: 042
     Dates: start: 201610
  6. IBUPROFEN. [Concomitant]
     Active Substance: IBUPROFEN
  7. OXYCODONE [Concomitant]
     Active Substance: OXYCODONE
     Dosage: 5 MG, UNK
  8. VELETRI [Suspect]
     Active Substance: EPOPROSTENOL
     Dosage: 26 NG/DL, PER MIN
     Route: 042

REACTIONS (6)
  - Dyspnoea [Recovered/Resolved]
  - Device malfunction [Unknown]
  - Headache [Unknown]
  - Complication associated with device [Recovered/Resolved]
  - Fatigue [Unknown]
  - Catheter management [Unknown]

NARRATIVE: CASE EVENT DATE: 20170630
